FAERS Safety Report 4828472-9 (Version None)
Quarter: 2005Q4

REPORT INFORMATION
  Report Type: 
  Country: None (occurrence: None)
  Receive Date: 20051110
  Receipt Date: 20051028
  Transmission Date: 20060501
  Serious: Yes (Other)
  Sender: FDA-Public Use
  Company Number: 2005033526

PATIENT
  Sex: Male

DRUGS (8)
  1. CELEBRA            (CELECOXIB) [Suspect]
     Indication: ANKYLOSING SPONDYLITIS
     Dosage: 200 MG (200 MG, 2 IN 1 D), ORAL
     Route: 048
     Dates: start: 19990101
  2. PREDNISONE [Suspect]
     Indication: ILL-DEFINED DISORDER
     Dosage: ORAL
     Route: 048
     Dates: start: 19850101
  3. LIPITOR [Concomitant]
  4. CAPTOPRIL [Concomitant]
  5. SULFASALAZINE [Concomitant]
  6. MONOCORDIL (ISOSORBIDE MONONITRATE) [Concomitant]
  7. PROPRANOLOL [Concomitant]
  8. ASPIRIN [Concomitant]

REACTIONS (3)
  - IMPAIRED HEALING [None]
  - INFARCTION [None]
  - LIMB INJURY [None]
